FAERS Safety Report 9079991 (Version 1)
Quarter: 2013Q1

REPORT INFORMATION
  Report Type: Report from Study
  Country: US (occurrence: US)
  Receive Date: 20130130
  Receipt Date: 20130130
  Transmission Date: 20140127
  Serious: No
  Sender: FDA-Public Use
  Company Number: US-ABBOTT-12P-163-0970275-00

PATIENT
  Age: 41 Year
  Sex: Female

DRUGS (6)
  1. HUMIRA 40 MG/0.8 ML PEN [Suspect]
     Indication: CROHN^S DISEASE
     Dates: start: 20120620, end: 20120810
  2. HUMIRA 40 MG/0.8 ML PEN [Suspect]
     Dates: start: 20120810
  3. IMURAN [Concomitant]
     Indication: CROHN^S DISEASE
     Route: 048
  4. IRON [Concomitant]
     Indication: ANAEMIA
     Route: 048
  5. VITAMIN C [Concomitant]
     Indication: MEDICAL DIET
     Route: 048
  6. VITAMIN B12 [Concomitant]
     Indication: VITAMIN B12 DECREASED
     Dosage: MONTHLY
     Route: 050

REACTIONS (5)
  - Crohn^s disease [Recovering/Resolving]
  - Diarrhoea [Recovering/Resolving]
  - Proctalgia [Recovering/Resolving]
  - Injection site pain [Unknown]
  - Injection site pain [Unknown]
